FAERS Safety Report 7033597-6 (Version None)
Quarter: 2010Q4

REPORT INFORMATION
  Report Type: 
  Country: None (occurrence: None)
  Receive Date: 20101007
  Receipt Date: 20100924
  Transmission Date: 20110411
  Serious: Yes (Other)
  Sender: FDA-Public Use
  Company Number: PHEH2009US08178

PATIENT
  Sex: Female

DRUGS (11)
  1. RECLAST [Suspect]
     Dosage: 5 MG
     Dates: start: 20080730
  2. RECLAST [Suspect]
     Dosage: 5 MG
     Dates: start: 20090911
  3. EVISTA [Suspect]
  4. TRANXENE [Concomitant]
  5. SYNTHROID [Concomitant]
  6. DIOVAN [Concomitant]
  7. SPIRONOLACTONE [Concomitant]
  8. LASIX [Concomitant]
  9. KLOR-CON [Concomitant]
  10. CALCIUM CITRATE [Concomitant]
  11. STEROID [Concomitant]
     Dosage: UNK
     Dates: start: 19940101

REACTIONS (9)
  - ABDOMINAL DISCOMFORT [None]
  - ARTHRALGIA [None]
  - BACK PAIN [None]
  - DIABETES MELLITUS [None]
  - INFLUENZA LIKE ILLNESS [None]
  - MALAISE [None]
  - NAUSEA [None]
  - PITUITARY TUMOUR REMOVAL [None]
  - VOMITING [None]
